FAERS Safety Report 9343658 (Version 2)
Quarter: 2013Q2

REPORT INFORMATION
  Report Type: Spontaneous
  Country: JP (occurrence: None)
  Receive Date: 20130610
  Receipt Date: 20130624
  Transmission Date: 20140414
  Serious: Yes (Hospitalization, Other)
  Sender: FDA-Public Use
  Company Number: JP-011935

PATIENT
  Age: 88 Year
  Sex: Male

DRUGS (2)
  1. GONAX [Suspect]
     Indication: PROSTATE CANCER
     Route: 058
     Dates: start: 20130328, end: 20130328
  2. VALERIN /00228502/ [Concomitant]

REACTIONS (2)
  - Fall [None]
  - Treatment noncompliance [None]
